FAERS Safety Report 5054459-X (Version None)
Quarter: 2006Q2

REPORT INFORMATION
  Report Type: 
  Country: None (occurrence: None)
  Receive Date: 20060616
  Receipt Date: 20060306
  Transmission Date: 20061013
  Serious: No
  Sender: FDA-Public Use
  Company Number: 219786

PATIENT
  Age: 37 Year
  Sex: Female

DRUGS (5)
  1. AVASTIN [Suspect]
     Indication: OVARIAN CANCER
     Dosage: Q3W
     Dates: start: 20050926
  2. CIPROFLOXACIN [Concomitant]
  3. FLAGYL [Concomitant]
  4. OXYCODONE (OXYCODONE) [Concomitant]
  5. ESTROGEN NOS (ESTROGENS NOS) [Concomitant]

REACTIONS (4)
  - CHILLS [None]
  - DYSPNOEA [None]
  - GLOSSODYNIA [None]
  - PYREXIA [None]
